FAERS Safety Report 20856181 (Version 1)
Quarter: 2022Q2

REPORT INFORMATION
  Report Type: Spontaneous
  Country: AU (occurrence: AU)
  Receive Date: 20220520
  Receipt Date: 20220520
  Transmission Date: 20220721
  Serious: Yes (Other)
  Sender: FDA-Public Use
  Company Number: None

PATIENT
  Age: 75 Year
  Sex: Female

DRUGS (3)
  1. DILTIAZEM HYDROCHLORIDE [Suspect]
     Active Substance: DILTIAZEM HYDROCHLORIDE
     Indication: Product used for unknown indication
     Route: 065
  2. ATENOLOL [Concomitant]
     Active Substance: ATENOLOL
     Indication: Atrial fibrillation
  3. IRBESARTAN [Concomitant]
     Active Substance: IRBESARTAN
     Indication: Atrial fibrillation

REACTIONS (7)
  - Lactic acidosis [Unknown]
  - Syncope [Unknown]
  - Bradycardia [Unknown]
  - Flushing [Unknown]
  - Hyperglycaemia [Unknown]
  - Hypotension [Unknown]
  - Vomiting [Unknown]
